FAERS Safety Report 22276472 (Version 1)
Quarter: 2023Q2

REPORT INFORMATION
  Report Type: Spontaneous
  Country: CA (occurrence: CA)
  Receive Date: 20230503
  Receipt Date: 20230503
  Transmission Date: 20230722
  Serious: Yes (Other)
  Sender: FDA-Public Use
  Company Number: CA-AUROBINDO-AUR-APL-2023-032900

PATIENT
  Age: 71 Year
  Sex: Female
  Weight: 57 kg

DRUGS (3)
  1. TRANDOLAPRIL [Suspect]
     Active Substance: TRANDOLAPRIL
     Indication: Hypertension
     Dosage: 4 MILLIGRAM, ONCE A DAY
     Route: 048
  2. NORVASC [Concomitant]
     Active Substance: AMLODIPINE BESYLATE
     Indication: Product used for unknown indication
     Dosage: UNK
     Route: 065
  3. PROLIA [Concomitant]
     Active Substance: DENOSUMAB
     Indication: Product used for unknown indication
     Dosage: UNK
     Route: 058

REACTIONS (2)
  - Headache [Not Recovered/Not Resolved]
  - Product substitution issue [Not Recovered/Not Resolved]
